FAERS Safety Report 13428170 (Version 1)
Quarter: 2017Q2

REPORT INFORMATION
  Report Type: Spontaneous
  Country: FR (occurrence: FR)
  Receive Date: 20170411
  Receipt Date: 20170411
  Transmission Date: 20170830
  Serious: Yes (Life-Threatening, Hospitalization, Other)
  Sender: FDA-Public Use
  Company Number: FR-PFIZER INC-2017150343

PATIENT
  Age: 45 Year
  Sex: Female

DRUGS (5)
  1. XANAX [Suspect]
     Active Substance: ALPRAZOLAM
     Indication: ANXIETY
     Dosage: 0.25 MG, 2X/DAY
     Route: 048
     Dates: start: 20170224, end: 20170304
  2. IMOVANE [Concomitant]
     Active Substance: ZOPICLONE
     Dosage: UNK
  3. BRINTELLIX [Suspect]
     Active Substance: VORTIOXETINE HYDROBROMIDE
     Dosage: UNK
     Route: 048
     Dates: start: 20170306, end: 20170307
  4. BRINTELLIX [Suspect]
     Active Substance: VORTIOXETINE HYDROBROMIDE
     Indication: DEPRESSION
     Dosage: 15 MG, 1X/DAY
     Route: 048
     Dates: start: 20170224, end: 20170304
  5. VENTOLINE /00139502/ [Concomitant]
     Dosage: UNK

REACTIONS (7)
  - Suicide attempt [Recovered/Resolved]
  - Loss of consciousness [Unknown]
  - Head injury [Unknown]
  - Fracture [Unknown]
  - Joint dislocation [Unknown]
  - Disease recurrence [Recovered/Resolved]
  - Vertebral artery dissection [Unknown]

NARRATIVE: CASE EVENT DATE: 20170304
